FAERS Safety Report 23491031 (Version 1)
Quarter: 2024Q1

REPORT INFORMATION
  Report Type: Spontaneous
  Country: US (occurrence: US)
  Receive Date: 20240206
  Receipt Date: 20240206
  Transmission Date: 20240409
  Serious: No
  Sender: FDA-Public Use
  Company Number: US-ABBVIE-5620428

PATIENT

DRUGS (1)
  1. LATISSE [Suspect]
     Active Substance: BIMATOPROST
     Indication: Product used for unknown indication
     Dosage: 0.03%, STRENGTH: 0.3MG/ML, ROUTE: TOPICAL OPHTHALMIC
     Route: 065

REACTIONS (1)
  - Drug hypersensitivity [Unknown]
